FAERS Safety Report 25932234 (Version 1)
Quarter: 2025Q4

REPORT INFORMATION
  Report Type: Spontaneous
  Country: EU (occurrence: EU)
  Receive Date: 20251016
  Receipt Date: 20251016
  Transmission Date: 20260117
  Serious: Yes (Hospitalization)
  Sender: TEVA
  Company Number: None

PATIENT
  Age: 68 Year
  Sex: Female
  Weight: 84 kg

DRUGS (2)
  1. FUROSEMIDE [Suspect]
     Active Substance: FUROSEMIDE
     Indication: Hypertension
     Dosage: 1X20 MG, BRAND NAME NOT SPECIFIED
     Route: 048
     Dates: start: 20250501, end: 20250915
  2. CLOZAPINE [Suspect]
     Active Substance: CLOZAPINE
     Indication: Schizophrenia
     Dosage: 1X200 MG, BRAND NAME NOT SPECIFIED, DOSE DECREASED ON 13-9-2025
     Route: 048
     Dates: start: 20250501

REACTIONS (3)
  - Orthostatic hypotension [Recovering/Resolving]
  - Oxygen saturation decreased [Recovering/Resolving]
  - Consciousness fluctuating [Recovering/Resolving]
